FAERS Safety Report 17596730 (Version 1)
Quarter: 2020Q1

REPORT INFORMATION
  Report Type: Report from Study
  Country: None (occurrence: US)
  Receive Date: 20200330
  Receipt Date: 20200330
  Transmission Date: 20200409
  Serious: Yes (Other)
  Sender: FDA-Public Use
  Company Number: US-ABBVIE-20K-163-3340155-00

PATIENT
  Sex: Male

DRUGS (1)
  1. HUMIRA [Suspect]
     Active Substance: ADALIMUMAB
     Indication: CROHN^S DISEASE
     Route: 058
     Dates: start: 20190619

REACTIONS (7)
  - Anxiety [Not Recovered/Not Resolved]
  - Diarrhoea [Unknown]
  - Fear [Not Recovered/Not Resolved]
  - Adverse food reaction [Unknown]
  - Insomnia [Not Recovered/Not Resolved]
  - Seizure [Unknown]
  - Depressed mood [Not Recovered/Not Resolved]
